FAERS Safety Report 8217552-6 (Version None)
Quarter: 2012Q1

REPORT INFORMATION
  Report Type: 
  Country: None (occurrence: None)
  Receive Date: 20120305
  Receipt Date: 20111103
  Transmission Date: 20120608
  Serious: No
  Sender: FDA-Public Use
  Company Number: 1000025195

PATIENT
  Age: 69 Year
  Sex: Female

DRUGS (8)
  1. ZOCOR [Concomitant]
  2. SYNTHROID (LEVOTHYROXINE SODIUM) (LEVOTHYROXINE SODIUM) [Concomitant]
  3. LISINOPRIL [Concomitant]
  4. DALIRESP [Suspect]
     Indication: CHRONIC OBSTRUCTIVE PULMONARY DISEASE
     Dosage: 500 MCG (500 MCG, 1 IN 1 D), ORAL
     Route: 048
     Dates: start: 20110801
  5. BUDESONIDE [Concomitant]
  6. PAXIL [Concomitant]
  7. FOSAMAX [Concomitant]
  8. ALBUTEROL (ALBUTEROL) (ALBUTEROL) [Concomitant]

REACTIONS (3)
  - WEIGHT DECREASED [None]
  - FUNGAL INFECTION [None]
  - HOT FLUSH [None]
